FAERS Safety Report 20374581 (Version 1)
Quarter: 2022Q1

REPORT INFORMATION
  Report Type: Spontaneous
  Country: CH (occurrence: CH)
  Receive Date: 20220125
  Receipt Date: 20220125
  Transmission Date: 20220424
  Serious: Yes (Other)
  Sender: FDA-Public Use
  Company Number: CH-LUPIN PHARMACEUTICALS INC.-2022-00871

PATIENT
  Age: 39 Year
  Sex: Female

DRUGS (2)
  1. FLUOXETINE [Suspect]
     Active Substance: FLUOXETINE HYDROCHLORIDE
     Indication: Major depression
     Dosage: 40 MILLIGRAM, QD
     Route: 065
  2. VORTIOXETINE [Suspect]
     Active Substance: VORTIOXETINE
     Indication: Major depression
     Dosage: 10 MILLIGRAM, QD
     Route: 065

REACTIONS (1)
  - Therapy non-responder [Unknown]
